FAERS Safety Report 6766453-9 (Version None)
Quarter: 2010Q2

REPORT INFORMATION
  Report Type: 
  Country: None (occurrence: None)
  Receive Date: 20100611
  Receipt Date: 20100608
  Transmission Date: 20101027
  Serious: Yes (Other)
  Sender: FDA-Public Use
  Company Number: US-PFIZER INC-2009208849

PATIENT
  Sex: Male
  Weight: 77 kg

DRUGS (12)
  1. REVATIO [Suspect]
     Indication: HYPERTENSION
     Dosage: 20 MG, 3X/DAY
     Route: 048
     Dates: start: 20090318, end: 20100210
  2. REVATIO [Suspect]
     Indication: CARDIAC DISORDER
  3. REVATIO [Suspect]
     Indication: PULMONARY HYPERTENSION
  4. COREG [Concomitant]
     Dosage: 6.25 MG, 1X/DAY
  5. LISINOPRIL [Concomitant]
     Dosage: 10 MG, 1X/DAY
  6. FINASTERIDE [Concomitant]
     Dosage: 5 MG, 1X/DAY
  7. SIMVASTATIN [Concomitant]
     Dosage: 40 MG, UNK
  8. WARFARIN SODIUM [Concomitant]
     Dosage: UNK
  9. LASIX [Concomitant]
     Dosage: 20 MG, 1X/DAY
  10. POTASSIUM CHLORIDE [Concomitant]
     Dosage: 20 MEQ, 1X/DAY
  11. ACETYLSALICYLIC ACID [Concomitant]
     Dosage: 81 MG, UNK
  12. OMEPRAZOLE [Concomitant]
     Dosage: 20 MG, 1X/DAY (AS NEEDED)

REACTIONS (2)
  - CARDIAC OPERATION [None]
  - HYPERTENSION [None]
